FAERS Safety Report 22151707 (Version 3)
Quarter: 2024Q4

REPORT INFORMATION
  Report Type: Report from Study
  Country: CO (occurrence: CO)
  Receive Date: 20230329
  Receipt Date: 20241220
  Transmission Date: 20250115
  Serious: No
  Sender: ROCHE
  Company Number: CO-ROCHE-3316262

PATIENT
  Age: 68 Year
  Sex: Female

DRUGS (4)
  1. BEVACIZUMAB [Suspect]
     Active Substance: BEVACIZUMAB
     Indication: Neoplasm
     Dosage: ON 26/JAN/2023, SHE RECEIVED MOST RECENT DOSE OF 15 MG/KG OF BEVACIZUMAB PRIOR TO AE/SAE.
     Route: 042
     Dates: start: 20220921
  2. PACLITAXEL [Suspect]
     Active Substance: PACLITAXEL
     Indication: Neoplasm
     Dosage: ON 16/DEC/2022, SHE RECEIVED MOST RECENT DOSE OF 231 MG OF PACLITAXEL PRIOR TO AE/SAE.
     Route: 042
     Dates: start: 20220921, end: 20221216
  3. CARBOPLATIN [Suspect]
     Active Substance: CARBOPLATIN
     Indication: Neoplasm
     Dosage: ON 16/DEC/2022, SHE RECEIVED MOST RECENT DOSE OF 450 MG OF CARBOPLATIN PRIOR TO AE/SAE.
     Route: 042
     Dates: start: 20220921, end: 20221216
  4. DENOSUMAB [Suspect]
     Active Substance: DENOSUMAB
     Indication: Neoplasm
     Dosage: ON 26/JAN/2023, RECEIVED THE MOST RECENT DOSE 1200 MG
     Route: 042
     Dates: start: 20220921

REACTIONS (1)
  - Hepatotoxicity [Recovering/Resolving]

NARRATIVE: CASE EVENT DATE: 20230217
